FAERS Safety Report 4651715-1 (Version None)
Quarter: 2005Q2

REPORT INFORMATION
  Report Type: 
  Country: None (occurrence: None)
  Receive Date: 20050404
  Receipt Date: 20041124
  Transmission Date: 20051028
  Serious: No
  Sender: FDA-Public Use
  Company Number: USA041184569

PATIENT
  Sex: Female

DRUGS (1)
  1. CYMBALTA [Suspect]
     Indication: MAJOR DEPRESSION
     Dosage: 30 MG

REACTIONS (1)
  - INFLUENZA LIKE ILLNESS [None]
